FAERS Safety Report 25968809 (Version 1)
Quarter: 2025Q4

REPORT INFORMATION
  Report Type: Spontaneous
  Country: US (occurrence: None)
  Receive Date: 20251028
  Receipt Date: 20251028
  Transmission Date: 20260118
  Serious: No
  Sender: FDA-CTU
  Company Number: None

PATIENT
  Sex: Male

DRUGS (1)
  1. VITAMIN K [Suspect]
     Active Substance: PHYTONADIONE

REACTIONS (2)
  - Rash maculo-papular [None]
  - Injection site eczema [None]
